FAERS Safety Report 25812471 (Version 2)
Quarter: 2025Q4

REPORT INFORMATION
  Report Type: Spontaneous
  Country: GB (occurrence: GB)
  Receive Date: 20250917
  Receipt Date: 20251008
  Transmission Date: 20260117
  Serious: Yes (Hospitalization, Disabling, Other)
  Sender: TEVA
  Company Number: GB-MLMSERVICE-20250826-PI620397-00336-3

PATIENT
  Age: 9 Year
  Sex: Female

DRUGS (1)
  1. ZOLEDRONIC ACID [Suspect]
     Active Substance: ZOLEDRONIC ACID
     Indication: Osteoporosis
     Dosage: UNK, Q6M
     Route: 065
     Dates: start: 202112

REACTIONS (4)
  - Atypical femur fracture [Recovered/Resolved]
  - Limb deformity [Recovered/Resolved]
  - Femur fracture [Recovered/Resolved]
  - Product use issue [Unknown]

NARRATIVE: CASE EVENT DATE: 20240101
